FAERS Safety Report 8183176-2 (Version None)
Quarter: 2012Q1

REPORT INFORMATION
  Report Type: 
  Country: None (occurrence: None)
  Receive Date: 20120201
  Receipt Date: 20110104
  Transmission Date: 20120608
  Serious: No
  Sender: FDA-Public Use
  Company Number: 262164USA

PATIENT
  Age: 58 Year
  Sex: Female

DRUGS (1)
  1. PROPOXYPHENE NAPSYLATE AND ACETAMINOPHEN [Suspect]
     Dates: start: 20080101, end: 20101201

REACTIONS (2)
  - EXTRASYSTOLES [None]
  - CHEST PAIN [None]
